FAERS Safety Report 13048460 (Version 2)
Quarter: 2017Q1

REPORT INFORMATION
  Report Type: Spontaneous
  Country: JP (occurrence: JP)
  Receive Date: 20161221
  Receipt Date: 20170127
  Transmission Date: 20170428
  Serious: Yes (Other)
  Sender: FDA-Public Use
  Company Number: PHJP2016JP036826

PATIENT
  Age: 81 Year
  Sex: Female

DRUGS (6)
  1. EXELON PATCH [Suspect]
     Active Substance: RIVASTIGMINE
     Indication: DEMENTIA
     Dosage: 1.9 MG, QD PATCH 2.5 (CM2)
     Route: 062
     Dates: start: 20150407, end: 20150519
  2. NEUPRO [Suspect]
     Active Substance: ROTIGOTINE
     Indication: DEMENTIA
     Dosage: 9 MG, UNK
     Route: 062
     Dates: start: 20150407, end: 20150519
  3. PARLODEL [Concomitant]
     Active Substance: BROMOCRIPTINE MESYLATE
     Indication: PRODUCT USED FOR UNKNOWN INDICATION
     Dosage: 2 DF, UNK
     Route: 048
  4. EC DOPARL [Concomitant]
     Active Substance: BENSERAZIDE HYDROCHLORIDE\LEVODOPA
     Indication: PRODUCT USED FOR UNKNOWN INDICATION
     Dosage: 50 MG, TID
     Route: 065
  5. DOPS [Concomitant]
     Active Substance: DROXIDOPA
     Indication: PRODUCT USED FOR UNKNOWN INDICATION
     Dosage: 3 DF, UNK
     Route: 048
  6. FP-OD [Concomitant]
     Active Substance: SELEGILINE HYDROCHLORIDE
     Indication: PRODUCT USED FOR UNKNOWN INDICATION
     Dosage: 2.5 MG, PER ADMINISTRATION
     Route: 048

REACTIONS (6)
  - Product use issue [Unknown]
  - Cardiac failure [Recovered/Resolved]
  - Oedema peripheral [Recovered/Resolved]
  - Torticollis [Unknown]
  - Cardiac hypertrophy [Recovered/Resolved]
  - Dementia [Unknown]

NARRATIVE: CASE EVENT DATE: 20150507
